FAERS Safety Report 23983029 (Version 1)
Quarter: 2024Q2

REPORT INFORMATION
  Report Type: Spontaneous
  Country: US (occurrence: US)
  Receive Date: 20240617
  Receipt Date: 20240617
  Transmission Date: 20240715
  Serious: No
  Sender: FDA-Public Use
  Company Number: US-ELI_LILLY_AND_COMPANY-US202406008577

PATIENT
  Age: 24 Year
  Sex: Male

DRUGS (2)
  1. TALTZ [Suspect]
     Active Substance: IXEKIZUMAB
     Indication: Guttate psoriasis
     Dosage: 80 MG, OTHER (EVERY 12 WEEKS)
     Route: 058
  2. TALTZ [Suspect]
     Active Substance: IXEKIZUMAB
     Dosage: 80 MG, OTHER (EVERY 12 WEEKS)
     Route: 058

REACTIONS (2)
  - Psoriasis [Unknown]
  - Inappropriate schedule of product administration [Unknown]
